FAERS Safety Report 4313175-X (Version None)
Quarter: 2004Q1

REPORT INFORMATION
  Report Type: 
  Country: None (occurrence: None)
  Receive Date: 20040304
  Receipt Date: 20040223
  Transmission Date: 20041129
  Serious: Yes (Hospitalization)
  Sender: FDA-Public Use
  Company Number: US047725

PATIENT
  Age: 48 Year
  Sex: Female

DRUGS (2)
  1. ENBREL [Suspect]
     Indication: RHEUMATOID ARTHRITIS
     Dosage: 25 MG, TWICE WEEKLY, SC
     Route: 058
     Dates: start: 20000601, end: 20020601
  2. PREDNISONE [Concomitant]

REACTIONS (5)
  - ANAEMIA [None]
  - DERMATOMYOSITIS [None]
  - EMPHYSEMA [None]
  - PULMONARY FIBROSIS [None]
  - RENAL FAILURE [None]
